FAERS Safety Report 9235934 (Version 1)
Quarter: 2013Q2

REPORT INFORMATION
  Report Type: Spontaneous
  Country: US (occurrence: US)
  Receive Date: 20130417
  Receipt Date: 20130417
  Transmission Date: 20140414
  Serious: No
  Sender: FDA-Public Use
  Company Number: US-BAYER-2013-047288

PATIENT
  Age: 65 Year
  Sex: Male

DRUGS (2)
  1. AVELOX [Suspect]
     Indication: UPPER RESPIRATORY TRACT INFECTION
     Dosage: 400 MG, UNK
     Route: 048
     Dates: start: 20130411, end: 20130411
  2. AVELOX [Suspect]
     Indication: COUGH

REACTIONS (4)
  - Erythema [Recovering/Resolving]
  - Swelling face [Recovering/Resolving]
  - Local swelling [Recovering/Resolving]
  - Urticaria [Recovering/Resolving]
